FAERS Safety Report 9548664 (Version 1)
Quarter: 2013Q3

REPORT INFORMATION
  Report Type: Spontaneous
  Country: US (occurrence: None)
  Receive Date: 20130923
  Receipt Date: 20130923
  Transmission Date: 20140515
  Serious: Yes (Life-Threatening, Hospitalization, Disabling)
  Sender: FDA-Public Use
  Company Number: None

PATIENT
  Age: 46 Year
  Sex: Male
  Weight: 87.09 kg

DRUGS (1)
  1. LATUDA [Suspect]
     Indication: BIPOLAR DISORDER
     Dosage: 1 PILL THEN INCREASD 2 PILLS ONCE DAILY TAKEN BY MOUTH
     Dates: start: 201306, end: 201308

REACTIONS (4)
  - Convulsion [None]
  - Asthenia [None]
  - Balance disorder [None]
  - Disturbance in attention [None]
